FAERS Safety Report 5489277-1 (Version None)
Quarter: 2007Q4

REPORT INFORMATION
  Report Type: 
  Country: None (occurrence: None)
  Receive Date: 20071016
  Receipt Date: 20071005
  Transmission Date: 20080405
  Serious: Yes (Other)
  Sender: FDA-Public Use
  Company Number: 2007EN000252

PATIENT
  Age: 62 Year
  Sex: Female
  Weight: 68.0396 kg

DRUGS (9)
  1. OPANA ER [Suspect]
     Indication: BACK PAIN
     Dosage: Q12H
     Dates: start: 20070901, end: 20070901
  2. OPANA [Suspect]
     Indication: BACK PAIN
     Dosage: PRN
     Dates: start: 20070801, end: 20070901
  3. OXYCODONE HCL [Concomitant]
  4. OXYCONTIN [Concomitant]
  5. CARDIAZEM [Concomitant]
  6. TOPROL-XL [Concomitant]
  7. KEFLEX [Concomitant]
  8. HYDROCODONE [Concomitant]
  9. LYRICA [Concomitant]

REACTIONS (7)
  - AMNESIA [None]
  - BLOOD PRESSURE INCREASED [None]
  - CONFUSIONAL STATE [None]
  - DIZZINESS [None]
  - DRUG WITHDRAWAL SYNDROME [None]
  - FALL [None]
  - SKIN LACERATION [None]
